FAERS Safety Report 24178822 (Version 7)
Quarter: 2024Q4

REPORT INFORMATION
  Report Type: Report from Study
  Country: JP (occurrence: JP)
  Receive Date: 20240806
  Receipt Date: 20241128
  Transmission Date: 20250115
  Serious: Yes (Hospitalization)
  Sender: PFIZER
  Company Number: JP-PFIZER INC-202400210448

PATIENT
  Age: 69 Year
  Sex: Female

DRUGS (6)
  1. ELRANATAMAB [Suspect]
     Active Substance: ELRANATAMAB
     Indication: Plasma cell myeloma
     Dosage: 12 MG
     Route: 058
     Dates: start: 20240625
  2. ELRANATAMAB [Suspect]
     Active Substance: ELRANATAMAB
     Dosage: 32 MG
     Route: 058
     Dates: start: 20240628
  3. ELRANATAMAB [Suspect]
     Active Substance: ELRANATAMAB
     Dosage: 76 MG
     Route: 058
     Dates: start: 20240705
  4. ELRANATAMAB [Suspect]
     Active Substance: ELRANATAMAB
     Dosage: 32 MG
     Route: 058
     Dates: start: 20240730
  5. ELRANATAMAB [Suspect]
     Active Substance: ELRANATAMAB
     Dosage: 32 MG
     Route: 058
     Dates: start: 20240813
  6. ELRANATAMAB [Suspect]
     Active Substance: ELRANATAMAB
     Dosage: BIWEEKLY
     Route: 058
     Dates: start: 202409, end: 2024

REACTIONS (4)
  - Cytopenia [Recovering/Resolving]
  - Fracture [Recovered/Resolved]
  - Fall [Unknown]
  - Hypogammaglobulinaemia [Recovered/Resolved]

NARRATIVE: CASE EVENT DATE: 20240101
